FAERS Safety Report 8464312-7 (Version None)
Quarter: 2012Q2

REPORT INFORMATION
  Report Type: 
  Country: None (occurrence: None)
  Receive Date: 20120625
  Receipt Date: 20120612
  Transmission Date: 20120825
  Serious: Yes (Hospitalization)
  Sender: FDA-Public Use
  Company Number: IT-BAYER-2012-057781

PATIENT
  Age: 85 Year
  Sex: Female

DRUGS (3)
  1. SIMVASTATIN [Concomitant]
     Dosage: DAILY DOSE 20 MG
     Route: 048
  2. ASPIRIN [Suspect]
     Indication: PROPHYLAXIS
     Dosage: 100 MG, QD
     Route: 048
     Dates: start: 20020101
  3. ENALAPRIL MALEATE [Concomitant]
     Dosage: DAILY DOSE 5 MG
     Route: 048

REACTIONS (2)
  - SUBDURAL HAEMATOMA [None]
  - HEADACHE [None]
